FAERS Safety Report 10690595 (Version 1)
Quarter: 2015Q1

REPORT INFORMATION
  Report Type: Spontaneous
  Country: IN (occurrence: None)
  Receive Date: 20150102
  Receipt Date: 20150102
  Transmission Date: 20150720
  Serious: Yes (Hospitalization)
  Sender: FDA-Public Use
  Company Number: IN-ZYDUS0006206

PATIENT
  Age: 25 Year
  Sex: Male

DRUGS (1)
  1. RISPERIDONE (RISPERIDONE) [Suspect]
     Active Substance: RISPERIDONE
     Indication: PSYCHOTIC DISORDER
     Route: 048

REACTIONS (4)
  - Trismus [None]
  - Temporomandibular joint syndrome [None]
  - Dystonia [None]
  - Joint dislocation [None]
